FAERS Safety Report 9599359 (Version 1)
Quarter: 2013Q4

REPORT INFORMATION
  Report Type: Spontaneous
  Country: US (occurrence: US)
  Receive Date: 20131004
  Receipt Date: 20131004
  Transmission Date: 20140711
  Serious: No
  Sender: FDA-Public Use
  Company Number: US-AMGEN-USASP2013029299

PATIENT
  Age: 74 Year
  Sex: Female
  Weight: 64.4 kg

DRUGS (8)
  1. ENBREL [Suspect]
     Indication: PRODUCT USED FOR UNKNOWN INDICATION
     Dosage: 50 MG, QWK
     Route: 058
  2. BENAZEPRIL [Concomitant]
     Dosage: 40 MG, UNK
  3. METOPROLOL [Concomitant]
     Dosage: 25 MG, UNK
  4. CRESTOR [Concomitant]
     Dosage: 10 MG, UNK
  5. ASA [Concomitant]
     Dosage: 81 MG, EC  LOW DOSE
  6. ZETIA [Concomitant]
     Dosage: 10 MG, UNK
  7. PEPCID                             /00706001/ [Concomitant]
     Dosage: 20 MG, UNK
  8. VITAMIN D                          /00107901/ [Concomitant]
     Dosage: 1000 UNIT, UNK

REACTIONS (1)
  - Nasopharyngitis [Unknown]
